FAERS Safety Report 8956732 (Version 1)
Quarter: 2012Q4

REPORT INFORMATION
  Report Type: 
  Country: JP (occurrence: JP)
  Receive Date: 20121211
  Receipt Date: 20121211
  Transmission Date: 20130627
  Serious: Yes (Hospitalization, Other)
  Sender: FDA-Public Use
  Company Number: JP-PFIZER INC-2005039920

PATIENT
  Age: 51 Year
  Sex: Male

DRUGS (3)
  1. IBUPROFEN [Suspect]
     Indication: PHARYNGITIS
     Dosage: UNSPECIFIED
     Route: 065
     Dates: start: 200302
  2. CEFCAPENE [Suspect]
     Indication: PHARYNGITIS
     Dosage: UNSPECIFIED
     Route: 065
     Dates: start: 200302
  3. LOXOPROFEN SODIUM [Suspect]
     Indication: PHARYNGITIS
     Dosage: UNSPECIFIED
     Route: 065
     Dates: start: 200302

REACTIONS (2)
  - Renal failure acute [Recovered/Resolved]
  - Anaemia haemolytic autoimmune [Recovered/Resolved]
